FAERS Safety Report 10497338 (Version 2)
Quarter: 2014Q4

REPORT INFORMATION
  Report Type: Spontaneous
  Country: US (occurrence: US)
  Receive Date: 20141006
  Receipt Date: 20141006
  Transmission Date: 20150528
  Serious: No
  Sender: FDA-Public Use
  Company Number: US-ELI_LILLY_AND_COMPANY-US201405010077

PATIENT
  Sex: Male
  Weight: 85.71 kg

DRUGS (13)
  1. CYRAMZA [Suspect]
     Active Substance: RAMUCIRUMAB
     Indication: GASTRIC CANCER
     Dosage: 657 MG, 2/M
     Route: 042
     Dates: start: 20140521, end: 20140521
  2. PEPCID [Concomitant]
     Active Substance: FAMOTIDINE
     Dosage: 20 MG, UNK
     Route: 042
     Dates: start: 20140521
  3. HYDROCODONE [Concomitant]
     Active Substance: HYDROCODONE
  4. ATENOLOL. [Concomitant]
     Active Substance: ATENOLOL
  5. LASIX [Concomitant]
     Active Substance: FUROSEMIDE
  6. ISOSORBIDE MONONITRATE. [Concomitant]
     Active Substance: ISOSORBIDE MONONITRATE
  7. METFORMIN [Concomitant]
     Active Substance: METFORMIN HYDROCHLORIDE
  8. ONGLYZA [Concomitant]
     Active Substance: SAXAGLIPTIN HYDROCHLORIDE
  9. CYRAMZA [Suspect]
     Active Substance: RAMUCIRUMAB
     Indication: OESOPHAGEAL ADENOCARCINOMA
     Dosage: 657 MG, 2/M
     Route: 042
     Dates: start: 20140522
  10. BENADRYL [Concomitant]
     Active Substance: DIPHENHYDRAMINE HYDROCHLORIDE
     Dosage: 25 MG, UNK
     Route: 042
     Dates: start: 20140521
  11. REMERON [Concomitant]
     Active Substance: MIRTAZAPINE
  12. LIPITOR [Concomitant]
     Active Substance: ATORVASTATIN CALCIUM
  13. ZEGERID                            /00661201/ [Concomitant]

REACTIONS (3)
  - Nausea [Recovered/Resolved]
  - Dizziness [Recovered/Resolved]
  - Urticaria [Recovered/Resolved]
